FAERS Safety Report 22541957 (Version 1)
Quarter: 2023Q2

REPORT INFORMATION
  Report Type: Spontaneous
  Country: FR (occurrence: FR)
  Receive Date: 20230609
  Receipt Date: 20230609
  Transmission Date: 20230722
  Serious: Yes (Life-Threatening)
  Sender: FDA-Public Use
  Company Number: FR-PFIZER INC-PV202300101452

PATIENT
  Age: 54 Year
  Sex: Female

DRUGS (3)
  1. LORLATINIB [Suspect]
     Active Substance: LORLATINIB
     Dosage: 100 MG, DAILY
  2. KEPPRA [Concomitant]
     Active Substance: LEVETIRACETAM
     Indication: Meningeal disorder
  3. MORPHINE [Concomitant]
     Active Substance: MORPHINE
     Indication: Meningeal disorder

REACTIONS (1)
  - Delirium [Recovered/Resolved]

NARRATIVE: CASE EVENT DATE: 20230101
